FAERS Safety Report 9888114 (Version 1)
Quarter: 2014Q1

REPORT INFORMATION
  Report Type: Spontaneous
  Country: IT (occurrence: None)
  Receive Date: 20140207
  Receipt Date: 20140207
  Transmission Date: 20141002
  Serious: Yes (Hospitalization)
  Sender: FDA-Public Use
  Company Number: 2014AP000897

PATIENT
  Age: 75 Year
  Sex: Female

DRUGS (6)
  1. LEVOFLOXACIN [Suspect]
     Indication: BRONCHITIS
     Dosage: 500 MG; TAB_FILM, PO; QD
     Route: 048
     Dates: start: 20140105, end: 20140109
  2. ELOPRAM /00582602 / (CITALOPRAM HYDROBROMIDE) [Concomitant]
  3. XANAX (ALPRAZOLAM) [Concomitant]
  4. TRIATEC /00885601/ (RAMIPRIL) [Concomitant]
  5. ACETYLSALICYLIC ACID (ACETYLSALICYLIC ACID) [Concomitant]
  6. PARACETAMOL (PARACETAMOL) [Concomitant]

REACTIONS (1)
  - Neutropenia [None]
